FAERS Safety Report 8572283-8 (Version None)
Quarter: 2012Q3

REPORT INFORMATION
  Report Type: 
  Country: None (occurrence: None)
  Receive Date: 20120806
  Receipt Date: 20120802
  Transmission Date: 20120928
  Serious: No
  Sender: FDA-Public Use
  Company Number: US-PFIZER INC-2012188767

PATIENT
  Age: 66 Year
  Sex: Female

DRUGS (1)
  1. PRISTIQ [Suspect]
     Indication: DEPRESSION
     Dosage: 150 MG ((100MG AND 50MG), 1X/DAY
     Route: 048
     Dates: start: 20110101, end: 20120729

REACTIONS (7)
  - HEADACHE [None]
  - SOMNOLENCE [None]
  - WITHDRAWAL SYNDROME [None]
  - DYSKINESIA [None]
  - NAUSEA [None]
  - DIZZINESS [None]
  - TREMOR [None]
